FAERS Safety Report 24435525 (Version 2)
Quarter: 2024Q4

REPORT INFORMATION
  Report Type: Spontaneous
  Country: CA (occurrence: CA)
  Receive Date: 20241015
  Receipt Date: 20241205
  Transmission Date: 20250114
  Serious: Yes (Other)
  Sender: ROCHE
  Company Number: CA-ROCHE-10000100157

PATIENT
  Age: 74 Year
  Sex: Male

DRUGS (2)
  1. PIRFENIDONE [Suspect]
     Active Substance: PIRFENIDONE
     Indication: Idiopathic pulmonary fibrosis
     Route: 048
  2. ERELZI [Suspect]
     Active Substance: ETANERCEPT-SZZS
     Indication: Product used for unknown indication
     Route: 065

REACTIONS (6)
  - Dyspnoea [Unknown]
  - Heart rate increased [Unknown]
  - Hyperhidrosis [Unknown]
  - Hypotension [Unknown]
  - Dizziness [Unknown]
  - Malaise [Unknown]
